FAERS Safety Report 6888539-0 (Version None)
Quarter: 2010Q3

REPORT INFORMATION
  Report Type: 
  Country: None (occurrence: None)
  Receive Date: 20100730
  Receipt Date: 20100719
  Transmission Date: 20110219
  Serious: Yes (Hospitalization)
  Sender: FDA-Public Use
  Company Number: JP-WATSON-2010-09934

PATIENT
  Age: 66 Year
  Sex: Male

DRUGS (3)
  1. CLOMIPRAMINE HCL [Suspect]
     Indication: MAJOR DEPRESSION
     Dosage: UNK
     Dates: start: 20070724, end: 20070807
  2. CLOMIPRAMINE HCL [Suspect]
     Dosage: 150 MG, DAILY
     Dates: start: 20070808
  3. PAROXETINE HCL [Suspect]
     Indication: MAJOR DEPRESSION
     Dosage: 40 MG, DAILY
     Dates: start: 20070724

REACTIONS (2)
  - CATATONIA [None]
  - SEROTONIN SYNDROME [None]
